FAERS Safety Report 14834295 (Version 1)
Quarter: 2018Q2

REPORT INFORMATION
  Report Type: Spontaneous
  Country: GB (occurrence: GB)
  Receive Date: 20180501
  Receipt Date: 20180501
  Transmission Date: 20180711
  Serious: Yes (Congenital Anomaly)
  Sender: FDA-Public Use
  Company Number: GB-PFIZER INC-456471

PATIENT

DRUGS (7)
  1. METOCLOPRAMIDE. [Concomitant]
     Active Substance: METOCLOPRAMIDE
     Dosage: 10 MG, FREQ:3 DAY
     Route: 064
     Dates: start: 20080109, end: 20080115
  2. PROMETHAZINE [Concomitant]
     Active Substance: PROMETHAZINE\PROMETHAZINE HYDROCHLORIDE
     Dosage: 25 MG, FREQ:3 DAY
     Dates: start: 20080109, end: 20080110
  3. THIAMINE. [Concomitant]
     Active Substance: THIAMINE
     Dosage: 25 MG, UNK
     Route: 064
     Dates: start: 20080114
  4. CYCLIZINE [Concomitant]
     Active Substance: CYCLIZINE
     Dosage: 50 MG, FREQ:3 DAY
     Route: 064
     Dates: start: 20080109, end: 20080114
  5. FOLIC ACID. [Concomitant]
     Active Substance: FOLIC ACID
     Dosage: 5 MG, UNK
     Route: 064
  6. ONDANSETRON HCL [Suspect]
     Active Substance: ONDANSETRON HYDROCHLORIDE
     Indication: VOMITING
     Dosage: 4 MG, FREQ:2 DAY
     Dates: start: 20080112, end: 20080114
  7. ONDANSETRON HCL [Suspect]
     Active Substance: ONDANSETRON HYDROCHLORIDE
     Dosage: 4 MG, FREQ:3 DAY
     Route: 064
     Dates: start: 20080114

REACTIONS (6)
  - Foetal growth restriction [Unknown]
  - Heart disease congenital [Unknown]
  - Maternal drugs affecting foetus [Unknown]
  - Foetal malformation [Unknown]
  - Spinal deformity [Unknown]
  - Gastroschisis [Unknown]
